FAERS Safety Report 4406498-7 (Version None)
Quarter: 2004Q3

REPORT INFORMATION
  Report Type: 
  Country: None (occurrence: None)
  Receive Date: 20040716
  Receipt Date: 20040708
  Transmission Date: 20050211
  Serious: Yes (Other)
  Sender: FDA-Public Use
  Company Number: 2004223032AU

PATIENT
  Age: 62 Year
  Sex: Female

DRUGS (4)
  1. CABERGOLINE [Suspect]
     Indication: PARKINSON'S DISEASE
     Dosage: 6 MG/DAY
  2. RULIDE [Concomitant]
  3. L-DOPA [Concomitant]
  4. COMTAN [Concomitant]

REACTIONS (2)
  - CATAPLEXY [None]
  - LOSS OF CONSCIOUSNESS [None]
